FAERS Safety Report 15920593 (Version 4)
Quarter: 2019Q2

REPORT INFORMATION
  Report Type: Spontaneous
  Country: AU (occurrence: AU)
  Receive Date: 20190205
  Receipt Date: 20190403
  Transmission Date: 20190711
  Serious: Yes (Other)
  Sender: FDA-Public Use
  Company Number: PHHY2019AU026739

PATIENT
  Age: 39 Year
  Sex: Female

DRUGS (1)
  1. LAMOTRIGINE SANDOZ [Suspect]
     Active Substance: LAMOTRIGINE
     Indication: PRODUCT USED FOR UNKNOWN INDICATION
     Dosage: 1.5 OT, BID
     Route: 048

REACTIONS (3)
  - Seizure [Recovered/Resolved]
  - Drug ineffective [Unknown]
  - Epilepsy [Recovered/Resolved]

NARRATIVE: CASE EVENT DATE: 201901
